FAERS Safety Report 8313275-3 (Version None)
Quarter: 2012Q2

REPORT INFORMATION
  Report Type: 
  Country: None (occurrence: None)
  Receive Date: 20120426
  Receipt Date: 20120419
  Transmission Date: 20120825
  Serious: Yes (Other)
  Sender: FDA-Public Use
  Company Number: US-BAYER-2012-009576

PATIENT
  Age: 38 Year
  Sex: Female

DRUGS (5)
  1. YASMIN [Suspect]
     Dosage: UNK
     Dates: start: 20060201
  2. YASMIN [Suspect]
     Dosage: UNK
     Dates: start: 20060101
  3. MULTI-VITAMIN [Concomitant]
  4. YASMIN [Suspect]
     Dosage: UNK
     Dates: start: 20050101, end: 20070101
  5. CALCIUM [Concomitant]

REACTIONS (3)
  - PAIN [None]
  - EMOTIONAL DISTRESS [None]
  - CHOLELITHIASIS [None]
